FAERS Safety Report 17395072 (Version 2)
Quarter: 2020Q2

REPORT INFORMATION
  Report Type: Spontaneous
  Country: US (occurrence: US)
  Receive Date: 20200210
  Receipt Date: 20200414
  Transmission Date: 20200713
  Serious: Yes (Other)
  Sender: FDA-Public Use
  Company Number: US-GILEAD-2020-0450121

PATIENT
  Sex: Male

DRUGS (1)
  1. STRIBILD [Suspect]
     Active Substance: COBICISTAT\ELVITEGRAVIR\EMTRICITABINE\TENOFOVIR DISOPROXIL FUMARATE
     Indication: HIV INFECTION
     Dosage: UNK
     Route: 048
     Dates: start: 2014, end: 2018

REACTIONS (11)
  - Bone density decreased [Unknown]
  - Anxiety [Not Recovered/Not Resolved]
  - Joint dislocation [Unknown]
  - Emotional distress [Not Recovered/Not Resolved]
  - Economic problem [Not Recovered/Not Resolved]
  - Blood creatinine increased [Unknown]
  - Chronic kidney disease [Unknown]
  - Pain [Not Recovered/Not Resolved]
  - Patella fracture [Unknown]
  - Fracture pain [Unknown]
  - Anhedonia [Not Recovered/Not Resolved]
